FAERS Safety Report 9971685 (Version 1)
Quarter: 2014Q1

REPORT INFORMATION
  Report Type: Report from Study
  Country: US (occurrence: US)
  Receive Date: 20140306
  Receipt Date: 20140306
  Transmission Date: 20141002
  Serious: No
  Sender: FDA-Public Use
  Company Number: US-ABBVIE-13P-163-1151103-00

PATIENT
  Sex: Male

DRUGS (3)
  1. HUMIRA [Suspect]
     Indication: CROHN^S DISEASE
     Dates: start: 201304
  2. LOTREL [Concomitant]
     Indication: HYPERTENSION
     Dosage: 5/20 MG DAILY
  3. ALLOPURINOL [Concomitant]
     Indication: GOUT

REACTIONS (4)
  - Malaise [Recovered/Resolved]
  - Gout [Recovered/Resolved]
  - Pyrexia [Recovered/Resolved]
  - Blood pressure increased [Recovered/Resolved]
